FAERS Safety Report 10025838 (Version 2)
Quarter: 2014Q2

REPORT INFORMATION
  Report Type: Spontaneous
  Country: US (occurrence: US)
  Receive Date: 20140320
  Receipt Date: 20140501
  Transmission Date: 20141212
  Serious: Yes (Death)
  Sender: FDA-Public Use
  Company Number: US-MPIJNJ-2014MPI000812

PATIENT
  Age: 69 Year
  Sex: Female

DRUGS (1)
  1. VELCADE [Suspect]
     Indication: MYCOSIS FUNGOIDES
     Dosage: 1.9 MG, UNK
     Route: 058

REACTIONS (2)
  - Death [Fatal]
  - Off label use [Unknown]
